FAERS Safety Report 7458934-X (Version None)
Quarter: 2011Q2

REPORT INFORMATION
  Report Type: 
  Country: None (occurrence: None)
  Receive Date: 20110504
  Receipt Date: 20110427
  Transmission Date: 20111010
  Serious: Yes (Hospitalization)
  Sender: FDA-Public Use
  Company Number: US-GILEAD-2011-0035691

PATIENT
  Sex: Female

DRUGS (1)
  1. LETAIRIS [Suspect]
     Indication: PULMONARY ARTERIAL HYPERTENSION
     Route: 048
     Dates: start: 20101227

REACTIONS (5)
  - VIRAL INFECTION [None]
  - DYSPNOEA [None]
  - ANEURYSM [None]
  - TENDONITIS [None]
  - NASAL CONGESTION [None]
